FAERS Safety Report 9150235 (Version 1)
Quarter: 2013Q1

REPORT INFORMATION
  Report Type: Report from Study
  Country: CA (occurrence: CA)
  Receive Date: 20130308
  Receipt Date: 20130308
  Transmission Date: 20140127
  Serious: Yes (Other)
  Sender: FDA-Public Use
  Company Number: CA-ABBOTT-13P-028-1047639-00

PATIENT
  Sex: Male
  Weight: 102.15 kg

DRUGS (4)
  1. HUMIRA [Suspect]
     Indication: CROHN^S DISEASE
     Route: 058
     Dates: start: 20110607, end: 20130120
  2. CORTISONE [Concomitant]
     Indication: IGA NEPHROPATHY
     Route: 058
  3. MONOPRIL [Concomitant]
     Indication: IGA NEPHROPATHY
     Route: 048
  4. NOVO-PUROL [Concomitant]
     Indication: GOUT
     Route: 048

REACTIONS (2)
  - Gastrointestinal inflammation [Unknown]
  - Inflammation [Not Recovered/Not Resolved]
